FAERS Safety Report 5446940-6 (Version None)
Quarter: 2007Q3

REPORT INFORMATION
  Report Type: 
  Country: None (occurrence: None)
  Receive Date: 20070907
  Receipt Date: 20070830
  Transmission Date: 20080115
  Serious: Yes (Hospitalization)
  Sender: FDA-Public Use
  Company Number: US-MERCK-0708USA05732

PATIENT
  Age: 54 Year
  Sex: Female

DRUGS (2)
  1. ZETIA [Suspect]
     Indication: BLOOD CHOLESTEROL
     Route: 048
     Dates: start: 20040801
  2. ESTROGENS (UNSPECIFIED) [Concomitant]
     Route: 061

REACTIONS (4)
  - DIVERTICULITIS [None]
  - DIVERTICULUM [None]
  - GASTROINTESTINAL INFECTION [None]
  - RECTAL HAEMORRHAGE [None]
